FAERS Safety Report 5521483-X (Version None)
Quarter: 2007Q4

REPORT INFORMATION
  Report Type: 
  Country: None (occurrence: None)
  Receive Date: 20071119
  Receipt Date: 20071108
  Transmission Date: 20080405
  Serious: Yes (Death, Life-Threatening, Hospitalization, Other)
  Sender: FDA-Public Use
  Company Number: JP-PFIZER INC-2007086875

PATIENT
  Sex: Male

DRUGS (1)
  1. SULPERAZON [Suspect]
     Indication: BILIARY TRACT INFECTION
     Dosage: DAILY DOSE:1GRAM
     Route: 042
     Dates: start: 20070827, end: 20070920

REACTIONS (1)
  - ANAPHYLACTIC SHOCK [None]
